FAERS Safety Report 24297916 (Version 2)
Quarter: 2024Q3

REPORT INFORMATION
  Report Type: Spontaneous
  Country: US (occurrence: US)
  Receive Date: 20240909
  Receipt Date: 20240913
  Transmission Date: 20241017
  Serious: Yes (Hospitalization)
  Sender: BAUSCH AND LOMB
  Company Number: US-BAUSCH-BL-2024-013326

PATIENT
  Age: 42 Year
  Sex: Female

DRUGS (3)
  1. XIFAXAN [Suspect]
     Active Substance: RIFAXIMIN
     Indication: Hepatic cirrhosis
     Dosage: 1 TABLET TWICE DAILY, FOR LIVER CIRRHOSIS ABOUT 2 YEARS AGO
     Route: 065
     Dates: start: 2022
  2. XIFAXAN [Suspect]
     Active Substance: RIFAXIMIN
     Route: 065
     Dates: start: 202407, end: 20240829
  3. XIFAXAN [Suspect]
     Active Substance: RIFAXIMIN
     Route: 065
     Dates: end: 20240907

REACTIONS (3)
  - Hospitalisation [Recovered/Resolved]
  - Therapy interrupted [Unknown]
  - Inability to afford medication [Unknown]

NARRATIVE: CASE EVENT DATE: 20240829
